FAERS Safety Report 8606183-1 (Version None)
Quarter: 2012Q3

REPORT INFORMATION
  Report Type: 
  Country: None (occurrence: None)
  Receive Date: 20120820
  Receipt Date: 20120813
  Transmission Date: 20120928
  Serious: Yes (Hospitalization)
  Sender: FDA-Public Use
  Company Number: DE-ROCHE-1101546

PATIENT
  Sex: Female
  Weight: 55 kg

DRUGS (3)
  1. DOCETAXEL [Suspect]
     Indication: BREAST CANCER
     Route: 042
     Dates: start: 20120801
  2. HERCEPTIN [Suspect]
     Indication: BREAST CANCER
     Route: 042
     Dates: start: 20120801
  3. PLACEBO [Suspect]
     Indication: BREAST CANCER
     Route: 042
     Dates: start: 20120801

REACTIONS (1)
  - GENERAL PHYSICAL HEALTH DETERIORATION [None]
